FAERS Safety Report 9523311 (Version 4)
Quarter: 2014Q1

REPORT INFORMATION
  Report Type: Spontaneous
  Country: US (occurrence: US)
  Receive Date: 20130913
  Receipt Date: 20140303
  Transmission Date: 20141002
  Serious: Yes (Other)
  Sender: FDA-Public Use
  Company Number: US-009507513-1309USA005932

PATIENT
  Sex: Female
  Weight: 99.77 kg

DRUGS (3)
  1. NUVARING [Suspect]
     Indication: CONTRACEPTION
     Dosage: UNK
     Route: 067
     Dates: start: 2005, end: 201209
  2. ADIPEX [Concomitant]
     Indication: PRODUCT USED FOR UNKNOWN INDICATION
  3. PROPRANOLOL HYDROCHLORIDE [Concomitant]
     Indication: HYPERTENSION
     Dosage: UNK
     Dates: start: 2007

REACTIONS (11)
  - Cholecystectomy [Unknown]
  - Deep vein thrombosis [Recovered/Resolved]
  - Hernia repair [Unknown]
  - Headache [Unknown]
  - Sinus disorder [Unknown]
  - Rhinorrhoea [Unknown]
  - Tension headache [Unknown]
  - Knee operation [Unknown]
  - Post thrombotic syndrome [Unknown]
  - Thrombosis [Unknown]
  - Seasonal allergy [Unknown]
